FAERS Safety Report 20407942 (Version 1)
Quarter: 2022Q1

REPORT INFORMATION
  Report Type: Spontaneous
  Country: SA (occurrence: SA)
  Receive Date: 20220201
  Receipt Date: 20220201
  Transmission Date: 20220423
  Serious: Yes (Hospitalization, Other)
  Sender: FDA-Public Use
  Company Number: SA-ALKEM LABORATORIES LIMITED-US-ALKEM-2022-00413

PATIENT
  Age: 54 Year
  Sex: Male

DRUGS (9)
  1. AMPHETAMINE SULFATE [Suspect]
     Active Substance: AMPHETAMINE SULFATE
     Indication: Product used for unknown indication
     Dosage: UNK
     Route: 048
  2. MORPHINE SULFATE [Suspect]
     Active Substance: MORPHINE SULFATE
     Indication: Product used for unknown indication
     Dosage: 2 MILLIGRAM, EVERY 10 MINUTES AS NEEDED
     Route: 042
  3. ASPIRIN [Suspect]
     Active Substance: ASPIRIN
     Indication: Product used for unknown indication
     Dosage: 324 MILLIGRAM, CHEW
     Route: 048
  4. ASPIRIN [Suspect]
     Active Substance: ASPIRIN
     Dosage: BABY ASPIRIN, OD
     Route: 048
  5. CLOPIDOGREL [Suspect]
     Active Substance: CLOPIDOGREL BISULFATE
     Indication: Product used for unknown indication
     Dosage: 300 MILLIGRAM
     Route: 048
  6. CLOPIDOGREL [Suspect]
     Active Substance: CLOPIDOGREL BISULFATE
     Dosage: 75 MILLIGRAM, OD FOR SIX MONTHS
     Route: 048
  7. UNSPECIFIED INGREDIENT [Suspect]
     Active Substance: UNSPECIFIED INGREDIENT
     Indication: Product used for unknown indication
     Dosage: 60 MILLIGRAM, EVERY 12 HOURS
     Route: 058
  8. NITROGLYCERIN [Suspect]
     Active Substance: NITROGLYCERIN
     Indication: Product used for unknown indication
     Dosage: 10 TO 20 UG/MIN
     Route: 065
  9. ALBUTEROL [Concomitant]
     Active Substance: ALBUTEROL
     Indication: Asthma
     Dosage: UNK
     Route: 045

REACTIONS (5)
  - Drug abuse [Unknown]
  - Coronary artery thrombosis [Unknown]
  - Myocardial ischaemia [Unknown]
  - Acute myocardial infarction [Unknown]
  - Therapy non-responder [Unknown]
